FAERS Safety Report 4548496-9 (Version None)
Quarter: 2005Q1

REPORT INFORMATION
  Report Type: 
  Country: None (occurrence: None)
  Receive Date: 20050110
  Receipt Date: 20040519
  Transmission Date: 20050727
  Serious: Yes (Life-Threatening)
  Sender: FDA-Public Use
  Company Number: FR-GLAXOSMITHKLINE-B0333199A

PATIENT
  Age: 69 Year
  Sex: Female
  Weight: 87 kg

DRUGS (5)
  1. CLAMOXYL [Suspect]
     Indication: ENDOCARDITIS
     Route: 048
     Dates: start: 20041231, end: 20040101
  2. FLUDEX [Suspect]
     Route: 048
     Dates: start: 20030601, end: 20040101
  3. GENTAMICIN [Suspect]
     Indication: ENDOCARDITIS
     Route: 042
     Dates: start: 20031231, end: 20040101
  4. AMLOR [Suspect]
     Dosage: 5MG PER DAY
     Route: 048
     Dates: start: 20000101
  5. PERFALGAN [Suspect]
     Indication: ENDOCARDITIS
     Route: 042
     Dates: start: 20031231, end: 20040101

REACTIONS (1)
  - ANGIONEUROTIC OEDEMA [None]
